FAERS Safety Report 19877201 (Version 2)
Quarter: 2021Q4

REPORT INFORMATION
  Report Type: Spontaneous
  Country: US (occurrence: US)
  Receive Date: 20210923
  Receipt Date: 20211004
  Transmission Date: 20220303
  Serious: Yes (Life-Threatening, Hospitalization)
  Sender: FDA-Public Use
  Company Number: US-TEVA-2021-US-1955326

PATIENT
  Age: 45 Year
  Sex: Female

DRUGS (1)
  1. DEXAMETHASONE [Suspect]
     Active Substance: DEXAMETHASONE
     Indication: Invasive ductal breast carcinoma
     Route: 065

REACTIONS (4)
  - Disseminated strongyloidiasis [Unknown]
  - Strongyloidiasis [Unknown]
  - Cardiac failure [Unknown]
  - Pneumonia klebsiella [Unknown]
